FAERS Safety Report 14180853 (Version 6)
Quarter: 2019Q1

REPORT INFORMATION
  Report Type: Spontaneous
  Country: US (occurrence: US)
  Receive Date: 20171110
  Receipt Date: 20190211
  Transmission Date: 20190417
  Serious: Yes (Hospitalization)
  Sender: FDA-Public Use
  Company Number: US-ACTELION-A-NJ2017-162433

PATIENT
  Age: 67 Year
  Sex: Male
  Weight: 105.67 kg

DRUGS (5)
  1. TRACLEER [Suspect]
     Active Substance: BOSENTAN
     Dosage: 125 MG, BID
     Route: 048
  2. DILTIAZEM. [Concomitant]
     Active Substance: DILTIAZEM
  3. ADCIRCA [Concomitant]
     Active Substance: TADALAFIL
  4. TRACLEER [Suspect]
     Active Substance: BOSENTAN
     Indication: PULMONARY ARTERIAL HYPERTENSION
     Dosage: 62.5 MG, BID
     Route: 048
  5. REMODULIN [Suspect]
     Active Substance: TREPROSTINIL
     Indication: PRODUCT USED FOR UNKNOWN INDICATION
     Dosage: UNK
     Route: 065

REACTIONS (12)
  - Headache [Unknown]
  - Catheterisation cardiac [Unknown]
  - Hyperhidrosis [Unknown]
  - Feeling hot [Unknown]
  - Medication error [Unknown]
  - Flushing [Unknown]
  - Heart rate increased [Unknown]
  - Malaise [Unknown]
  - Device infusion issue [Unknown]
  - Feeling abnormal [Unknown]
  - Device occlusion [Unknown]
  - Chest pain [Unknown]

NARRATIVE: CASE EVENT DATE: 20180815
